FAERS Safety Report 7159177-X (Version None)
Quarter: 2010Q4

REPORT INFORMATION
  Report Type: 
  Country: None (occurrence: None)
  Receive Date: 20101214
  Receipt Date: 20101209
  Transmission Date: 20110411
  Serious: Yes (Other)
  Sender: FDA-Public Use
  Company Number: FR-PFIZER INC-2010167607

PATIENT
  Sex: Female

DRUGS (1)
  1. TAHOR [Suspect]
     Dosage: UNK
     Dates: start: 20080101

REACTIONS (7)
  - BACK PAIN [None]
  - CHEST DISCOMFORT [None]
  - CHEST PAIN [None]
  - HYPOAESTHESIA [None]
  - INSOMNIA [None]
  - LIGAMENT OPERATION [None]
  - MYALGIA [None]
